FAERS Safety Report 4716251-2 (Version None)
Quarter: 2005Q3

REPORT INFORMATION
  Report Type: 
  Country: None (occurrence: None)
  Receive Date: 20050718
  Receipt Date: 20050713
  Transmission Date: 20060218
  Serious: Yes (Hospitalization)
  Sender: FDA-Public Use
  Company Number: DE-MERCK-0507DEU00106

PATIENT
  Age: 44 Year
  Sex: Male
  Weight: 88 kg

DRUGS (2)
  1. VYTORIN [Suspect]
     Indication: TYPE IIA HYPERLIPIDAEMIA
     Route: 048
     Dates: start: 20031001, end: 20050101
  2. FENOFIBRATE [Concomitant]
     Route: 065
     Dates: start: 20020201

REACTIONS (4)
  - ALANINE AMINOTRANSFERASE INCREASED [None]
  - ASPARTATE AMINOTRANSFERASE INCREASED [None]
  - GLUTAMATE DEHYDROGENASE INCREASED [None]
  - TRANSAMINASES INCREASED [None]
